FAERS Safety Report 4705168-5 (Version None)
Quarter: 2005Q3

REPORT INFORMATION
  Report Type: 
  Country: None (occurrence: None)
  Receive Date: 20050701
  Receipt Date: 20050624
  Transmission Date: 20060218
  Serious: Yes (Other)
  Sender: FDA-Public Use
  Company Number: 2005CG01171

PATIENT
  Age: 58 Year
  Sex: Male

DRUGS (1)
  1. ZOLADEX [Suspect]
     Indication: PROSTATE CANCER
     Route: 058
     Dates: start: 20041101, end: 20050101

REACTIONS (2)
  - GAMMA-GLUTAMYLTRANSFERASE INCREASED [None]
  - TRANSAMINASES INCREASED [None]
